FAERS Safety Report 7151860-5 (Version None)
Quarter: 2010Q4

REPORT INFORMATION
  Report Type: 
  Country: None (occurrence: None)
  Receive Date: 20101210
  Receipt Date: 20101130
  Transmission Date: 20110411
  Serious: Yes (Hospitalization)
  Sender: FDA-Public Use
  Company Number: IT-PFIZER INC-2010168252

PATIENT
  Age: 70 Year
  Sex: Male

DRUGS (6)
  1. CORDARONE [Suspect]
     Indication: ATRIAL FIBRILLATION
     Dosage: 200 MG, 1X/DAY
     Route: 048
     Dates: start: 20090901, end: 20100701
  2. GLYBURIDE [Concomitant]
  3. TAREG [Concomitant]
  4. ASPIRIN [Concomitant]
  5. MEPRAL [Concomitant]
  6. HMG COA REDUCTASE INHIBITORS [Concomitant]

REACTIONS (3)
  - ASTHENIA [None]
  - HEPATIC ENZYME INCREASED [None]
  - OEDEMA PERIPHERAL [None]
